FAERS Safety Report 8408927 (Version 3)
Quarter: 2013Q3

REPORT INFORMATION
  Report Type: Spontaneous
  Country: US (occurrence: US)
  Receive Date: 20120216
  Receipt Date: 20130819
  Transmission Date: 20140515
  Serious: Yes (Other)
  Sender: FDA-Public Use
  Company Number: US-ROCHE-1040240

PATIENT
  Sex: Female
  Weight: 86.26 kg

DRUGS (3)
  1. ACCUTANE [Suspect]
     Indication: ACNE
     Route: 065
     Dates: start: 1982, end: 1985
  2. ASPIRIN [Concomitant]
  3. SYNTHROID [Concomitant]

REACTIONS (5)
  - Crohn^s disease [Unknown]
  - Intestinal obstruction [Unknown]
  - Diverticulitis [Unknown]
  - Depression [Unknown]
  - Injury [Unknown]
